FAERS Safety Report 6327066-6 (Version None)
Quarter: 2009Q3

REPORT INFORMATION
  Report Type: 
  Country: None (occurrence: None)
  Receive Date: 20090825
  Receipt Date: 20090819
  Transmission Date: 20100115
  Serious: Yes (Hospitalization)
  Sender: FDA-Public Use
  Company Number: US-GILEAD-2009-0023798

PATIENT
  Sex: Female

DRUGS (16)
  1. LETAIRIS [Suspect]
     Indication: PULMONARY ARTERIAL HYPERTENSION
     Route: 048
     Dates: start: 20090618, end: 20090724
  2. TEARS NATURALE II [Concomitant]
  3. VITAMIN B1 TAB [Concomitant]
  4. OSCAL 500/200 D-3 [Concomitant]
  5. TYLENOL (CAPLET) [Concomitant]
  6. XALATAN [Concomitant]
  7. TRIAMCINOLONE [Concomitant]
  8. PLAVIX [Concomitant]
  9. HYDROCHLOROTHIAZIDE [Concomitant]
  10. HYDRALAZINE HCL [Concomitant]
  11. GLIPIZIDE [Concomitant]
  12. GEMFIBROZIL [Concomitant]
  13. FELODIPINE [Concomitant]
  14. COMBIVENT [Concomitant]
  15. CITALOPRAM [Concomitant]
  16. ATENOLOL [Concomitant]

REACTIONS (2)
  - CHOKING SENSATION [None]
  - OEDEMA PERIPHERAL [None]
